FAERS Safety Report 8921228 (Version 2)
Quarter: 2012Q4

REPORT INFORMATION
  Report Type: 
  Country: IT (occurrence: IT)
  Receive Date: 20121121
  Receipt Date: 20121205
  Transmission Date: 20130627
  Serious: Yes (Other)
  Sender: FDA-Public Use
  Company Number: IT-BRISTOL-MYERS SQUIBB COMPANY-17128265

PATIENT
  Age: 49 Year
  Sex: Female

DRUGS (6)
  1. COUMADIN TABS 5 MG [Suspect]
     Indication: DEEP VEIN THROMBOSIS
     Route: 048
     Dates: start: 20120601, end: 20121108
  2. AUGMENTIN [Interacting]
     Indication: PYREXIA
     Dosage: 1DF:^ 875mg/125mg tab^ 2 dose/day
     Route: 048
     Dates: start: 20121102, end: 20121108
  3. PAROXETINE [Concomitant]
     Route: 048
     Dates: start: 20100101
  4. DEPAKIN [Concomitant]
     Dosage: for 2 years
     Route: 048
     Dates: start: 20100101
  5. LEXOTAN [Concomitant]
  6. TAVOR [Concomitant]

REACTIONS (3)
  - Haematoma [Recovering/Resolving]
  - Hypocoagulable state [Recovering/Resolving]
  - Drug interaction [Unknown]
